FAERS Safety Report 9561806 (Version 1)
Quarter: 2013Q3

REPORT INFORMATION
  Report Type: Spontaneous
  Country: US (occurrence: US)
  Receive Date: 20130927
  Receipt Date: 20130927
  Transmission Date: 20140515
  Serious: No
  Sender: FDA-Public Use
  Company Number: US-BIOGENIDEC-2013BI063431

PATIENT
  Age: 30 Year
  Sex: Female

DRUGS (7)
  1. TECFIDERA [Suspect]
     Indication: MULTIPLE SCLEROSIS
     Route: 048
     Dates: start: 20130618
  2. TECFIDERA [Suspect]
     Indication: MULTIPLE SCLEROSIS
     Route: 048
     Dates: start: 20130625
  3. JUNEL FE [Concomitant]
  4. ASTEPRO [Concomitant]
     Route: 045
  5. FLONASE [Concomitant]
     Route: 045
  6. SINGULAIR [Concomitant]
  7. XYZAL [Concomitant]

REACTIONS (3)
  - Flushing [Not Recovered/Not Resolved]
  - Rash [Not Recovered/Not Resolved]
  - Abdominal discomfort [Not Recovered/Not Resolved]
